FAERS Safety Report 7096966-4 (Version None)
Quarter: 2010Q4

REPORT INFORMATION
  Report Type: 
  Country: None (occurrence: None)
  Receive Date: 20101111
  Receipt Date: 20100421
  Transmission Date: 20110411
  Serious: No
  Sender: FDA-Public Use
  Company Number: US-KINGPHARMUSA00001-K201000500

PATIENT
  Sex: Female

DRUGS (1)
  1. FLECTOR [Suspect]
     Indication: BACK PAIN
     Dosage: 3 PATCHES, UNK

REACTIONS (2)
  - DRUG DIVERSION [None]
  - FATIGUE [None]
